FAERS Safety Report 4801493-8 (Version None)
Quarter: 2005Q4

REPORT INFORMATION
  Report Type: 
  Country: None (occurrence: None)
  Receive Date: 20051018
  Receipt Date: 20051007
  Transmission Date: 20060501
  Serious: Yes (Other)
  Sender: FDA-Public Use
  Company Number: US-JNJFOC-20051002020

PATIENT
  Sex: Female
  Weight: 53.52 kg

DRUGS (9)
  1. REMICADE [Suspect]
     Dosage: PATIENT RECEIVED 4 DOSES.
     Route: 042
  2. REMICADE [Suspect]
     Indication: CROHN'S DISEASE
     Route: 042
  3. VITAMIN [Concomitant]
  4. LAMICTAL [Concomitant]
  5. PENTASA [Concomitant]
  6. PRILOSEC [Concomitant]
  7. CALCIUM GLUCONATE [Concomitant]
  8. ASPIRIN [Concomitant]
  9. VALIUM [Concomitant]

REACTIONS (4)
  - ARTHRALGIA [None]
  - CARPAL TUNNEL SYNDROME [None]
  - EXFOLIATIVE RASH [None]
  - GASTROOESOPHAGEAL REFLUX DISEASE [None]
